FAERS Safety Report 6125626-9 (Version None)
Quarter: 2009Q1

REPORT INFORMATION
  Report Type: 
  Country: None (occurrence: None)
  Receive Date: 20090319
  Receipt Date: 20090319
  Transmission Date: 20090719
  Serious: Yes (Life-Threatening, Hospitalization, Other)
  Sender: FDA-Public Use
  Company Number: None

PATIENT
  Age: 59 Year
  Sex: Male
  Weight: 108.8633 kg

DRUGS (1)
  1. ALEVE [Suspect]
     Indication: MUSCULOSKELETAL PAIN
     Dosage: 2 PILLS ONCE A DAY PO
     Route: 048
     Dates: start: 20081002, end: 20081005

REACTIONS (2)
  - APPARENT DEATH [None]
  - STEVENS-JOHNSON SYNDROME [None]
